FAERS Safety Report 8021968-0 (Version None)
Quarter: 2011Q4

REPORT INFORMATION
  Report Type: 
  Country: None (occurrence: None)
  Receive Date: 20111230
  Receipt Date: 20111216
  Transmission Date: 20120403
  Serious: Yes (Hospitalization, Other)
  Sender: FDA-Public Use
  Company Number: DSA_44446_2010

PATIENT
  Age: 30 Year
  Sex: Female

DRUGS (3)
  1. METOPROLOL SUCCINATE [Suspect]
     Indication: INTENTIONAL OVERDOSE
     Dosage: NOT THE PRESCRIBED AMOUNT, ONCE
  2. AMIODARONE HYDROCHLORIDE [Suspect]
     Indication: INTENTIONAL OVERDOSE
     Dosage: NOT THE PRESCRIBED AMOUNT, ONCE
  3. DILTIAZEM [Suspect]
     Indication: INTENTIONAL OVERDOSE
     Dosage: NOT THE PRESCRIBED AMOUNT, ONCE

REACTIONS (6)
  - BLOOD GLUCOSE INCREASED [None]
  - CONFUSIONAL STATE [None]
  - MULTIPLE DRUG OVERDOSE [None]
  - CARDIOGENIC SHOCK [None]
  - ABDOMINAL PAIN [None]
  - ANURIA [None]
